FAERS Safety Report 8392749-3 (Version None)
Quarter: 2012Q2

REPORT INFORMATION
  Report Type: 
  Country: None (occurrence: None)
  Receive Date: 20120529
  Receipt Date: 20110428
  Transmission Date: 20120825
  Serious: No
  Sender: FDA-Public Use
  Company Number: US-MYLANLABS-2011S1008978

PATIENT
  Sex: Female

DRUGS (1)
  1. AMITRIPTYLINE HCL [Suspect]
     Indication: MITOCHONDRIAL CYTOPATHY

REACTIONS (3)
  - DRUG LEVEL BELOW THERAPEUTIC [None]
  - DRUG INEFFECTIVE FOR UNAPPROVED INDICATION [None]
  - IMMUNOGLOBULINS INCREASED [None]
